FAERS Safety Report 12250351 (Version 3)
Quarter: 2016Q4

REPORT INFORMATION
  Report Type: Report from Study
  Country: US (occurrence: US)
  Receive Date: 20160408
  Receipt Date: 20161215
  Transmission Date: 20170207
  Serious: Yes (Hospitalization)
  Sender: FDA-Public Use
  Company Number: PHHO2016US004035

PATIENT
  Age: 48 Year
  Sex: Male
  Weight: 124 kg

DRUGS (9)
  1. COMPARATOR GEMCITABINE [Suspect]
     Active Substance: GEMCITABINE HYDROCHLORIDE
     Indication: LIPOSARCOMA
     Dosage: 500MG/M2, D1 AND D8 OF 21 DAY CYCLE
     Route: 042
     Dates: start: 20151110
  2. AMLODIPINE [Concomitant]
     Active Substance: AMLODIPINE BESYLATE
     Indication: PRODUCT USED FOR UNKNOWN INDICATION
     Dosage: 5 MG, UNK
     Route: 048
  3. ONDANSETRON [Concomitant]
     Active Substance: ONDANSETRON
     Indication: PRODUCT USED FOR UNKNOWN INDICATION
     Dosage: 4 MG, UNK
     Route: 048
  4. PAZOPANIB [Suspect]
     Active Substance: PAZOPANIB
     Indication: LIPOSARCOMA
     Dosage: UNK
     Route: 048
     Dates: start: 20151110
  5. CHLORTHALIDONE. [Concomitant]
     Active Substance: CHLORTHALIDONE
     Indication: PRODUCT USED FOR UNKNOWN INDICATION
     Dosage: 25 MG, UNK
     Route: 048
  6. COMPARATOR GEMCITABINE [Suspect]
     Active Substance: GEMCITABINE HYDROCHLORIDE
     Dosage: 1000 MG/M2, ON C6D8
     Route: 041
     Dates: start: 20160308, end: 20160308
  7. CALCIUM [Concomitant]
     Active Substance: CALCIUM
     Indication: PRODUCT USED FOR UNKNOWN INDICATION
     Dosage: 500 MG, UNK
     Route: 048
  8. METOPROLOL TARTRATE. [Concomitant]
     Active Substance: METOPROLOL TARTRATE
     Indication: PRODUCT USED FOR UNKNOWN INDICATION
     Dosage: 50 MG, UNK
     Route: 048
  9. XARELTO [Concomitant]
     Active Substance: RIVAROXABAN
     Indication: PRODUCT USED FOR UNKNOWN INDICATION
     Dosage: 20 MG, UNK
     Route: 048

REACTIONS (8)
  - Blood creatinine increased [None]
  - White blood cell count decreased [None]
  - Respiratory syncytial virus test positive [None]
  - Pyrexia [Unknown]
  - Upper respiratory tract infection [Unknown]
  - Anaemia [None]
  - Febrile neutropenia [Recovered/Resolved]
  - Platelet count decreased [None]

NARRATIVE: CASE EVENT DATE: 20160312
